FAERS Safety Report 6764071-X (Version None)
Quarter: 2010Q2

REPORT INFORMATION
  Report Type: 
  Country: None (occurrence: None)
  Receive Date: 20100610
  Receipt Date: 20100609
  Transmission Date: 20101027
  Serious: Yes (Hospitalization)
  Sender: FDA-Public Use
  Company Number: A0863386A

PATIENT
  Age: 39 Year
  Sex: Female

DRUGS (2)
  1. ALLI [Suspect]
     Indication: DRUG USE FOR UNKNOWN INDICATION
     Route: 048
     Dates: start: 20070101
  2. NO CONCURRENT MEDICATION [Concomitant]

REACTIONS (18)
  - ANAEMIA [None]
  - ASTHENIA [None]
  - BLOOD LACTATE DEHYDROGENASE INCREASED [None]
  - BLOOD TEST ABNORMAL [None]
  - COMA [None]
  - CONVULSION [None]
  - DYSPNOEA [None]
  - FATIGUE [None]
  - FEELING ABNORMAL [None]
  - HEPATIC FAILURE [None]
  - MALAISE [None]
  - MECHANICAL VENTILATION [None]
  - NAUSEA [None]
  - SENSORY DISTURBANCE [None]
  - THROMBOTIC THROMBOCYTOPENIC PURPURA [None]
  - VIRAL INFECTION [None]
  - VOMITING [None]
  - WHITE BLOOD CELL COUNT INCREASED [None]
